FAERS Safety Report 4738228-3 (Version None)
Quarter: 2005Q3

REPORT INFORMATION
  Report Type: 
  Country: None (occurrence: None)
  Receive Date: 20050809
  Receipt Date: 20050803
  Transmission Date: 20060218
  Serious: Yes (Other)
  Sender: FDA-Public Use
  Company Number: PHBS2005TR11272

PATIENT
  Age: 19 Year
  Sex: Male

DRUGS (12)
  1. CIPROFLOXACIN [Concomitant]
  2. METRONIDAZOLE [Concomitant]
  3. ACYCLOVIR [Concomitant]
  4. FLUCONAZOLE [Concomitant]
  5. SULFAMETHOXAZOLE + TRIMETHOPRIM [Concomitant]
  6. METHYLPREDNISOLONE 16MG TAB [Concomitant]
  7. CYCLOSPORINE [Suspect]
     Indication: STEM CELL TRANSPLANT
     Route: 065
  8. METHOTREXATE [Concomitant]
     Indication: STEM CELL TRANSPLANT
     Route: 065
  9. BUSULFAN [Concomitant]
     Indication: STEM CELL TRANSPLANT
  10. CYCLOPHOSPHAMIDE [Suspect]
     Indication: STEM CELL TRANSPLANT
  11. PHENYTOIN [Concomitant]
  12. URSODEOXYCHOLIC ACID [Concomitant]
     Dosage: 250 MG, BID

REACTIONS (23)
  - ABDOMINAL DISTENSION [None]
  - ABDOMINAL PAIN [None]
  - ASCITES [None]
  - ATELECTASIS [None]
  - AZOTAEMIA [None]
  - BLOOD CREATININE INCREASED [None]
  - BLOOD LACTATE DEHYDROGENASE INCREASED [None]
  - BLOOD PRESSURE INCREASED [None]
  - CYSTITIS HAEMORRHAGIC [None]
  - DRUG LEVEL INCREASED [None]
  - DYSPNOEA [None]
  - FEBRILE NEUTROPENIA [None]
  - HAEMOGLOBIN DECREASED [None]
  - HEPATOMEGALY [None]
  - MICROANGIOPATHIC HAEMOLYTIC ANAEMIA [None]
  - NEPHROPATHY TOXIC [None]
  - OLIGURIA [None]
  - PLATELET COUNT DECREASED [None]
  - PLEURAL EFFUSION [None]
  - PYREXIA [None]
  - RED BLOOD CELL SCHISTOCYTES PRESENT [None]
  - VENOOCCLUSIVE LIVER DISEASE [None]
  - VENOUS PRESSURE INCREASED [None]
